FAERS Safety Report 10482497 (Version 1)
Quarter: 2014Q3

REPORT INFORMATION
  Report Type: Spontaneous
  Country: TR (occurrence: TR)
  Receive Date: 20140929
  Receipt Date: 20140929
  Transmission Date: 20150326
  Serious: Yes (Other)
  Sender: FDA-Public Use
  Company Number: TR-ACTAVIS-2014-20960

PATIENT
  Age: 13 Year
  Sex: Female

DRUGS (1)
  1. CLOBETASOL PROPIONATE (AMALLC) [Suspect]
     Active Substance: CLOBETASOL PROPIONATE
     Indication: PSORIASIS
     Dosage: 100 MG, UNKNOWN, WEEKLY
     Route: 061

REACTIONS (3)
  - Intentional product misuse [None]
  - Psoriasis [Recovered/Resolved]
  - Cushing^s syndrome [Unknown]
